FAERS Safety Report 8607076-6 (Version None)
Quarter: 2012Q3

REPORT INFORMATION
  Report Type: 
  Country: None (occurrence: None)
  Receive Date: 20120821
  Receipt Date: 20120811
  Transmission Date: 20120928
  Serious: Yes (Hospitalization, Other)
  Sender: FDA-Public Use
  Company Number: US-BRISTOL-MYERS SQUIBB COMPANY-15704976

PATIENT
  Age: 65 Year
  Sex: Male
  Weight: 84 kg

DRUGS (1)
  1. IPILIMUMAB [Suspect]
     Indication: MALIGNANT MELANOMA
     Dosage: 3 TREATMENTS,LAST THERAPY ON3/9 OVER 90 MIN ON DAY 1,TOTAL DOSE: 925MG INT ON 30MAR11
     Route: 042
     Dates: start: 20110216

REACTIONS (11)
  - PLEURAL EFFUSION [None]
  - DEHYDRATION [None]
  - MUSCULAR WEAKNESS [None]
  - VIITH NERVE PARALYSIS [None]
  - HYPOTENSION [None]
  - FATIGUE [None]
  - HYPONATRAEMIA [None]
  - ATRIAL FIBRILLATION [None]
  - LUNG INFECTION [None]
  - BLOOD CREATININE INCREASED [None]
  - DECREASED APPETITE [None]
